FAERS Safety Report 6248614-0 (Version None)
Quarter: 2009Q2

REPORT INFORMATION
  Report Type: 
  Country: None (occurrence: None)
  Receive Date: 20090624
  Receipt Date: 20090624
  Transmission Date: 20091009
  Serious: Yes (Life-Threatening, Hospitalization)
  Sender: FDA-Public Use
  Company Number: None

PATIENT
  Age: 30 Year
  Sex: Male
  Weight: 78.9 kg

DRUGS (32)
  1. VORICONAZOLE [Suspect]
     Dosage: 420 MG IV Q 12 H 280MG IV Q12H
     Route: 042
     Dates: start: 20090307, end: 20090309
  2. TACROLIMUS [Suspect]
     Indication: GRAFT VERSUS HOST DISEASE
     Dosage: 15 MG IV Q24H 1.2MG IV Q24H
     Route: 042
     Dates: start: 20090228, end: 20090326
  3. APAP TAB [Concomitant]
  4. ACYCLOVIR [Concomitant]
  5. BACLOFEN [Concomitant]
  6. BISACODYL [Concomitant]
  7. CEFEPIME [Concomitant]
  8. CHLORHEXADIN [Concomitant]
  9. DEXAMETHASONE TAB [Concomitant]
  10. BENADRYL [Concomitant]
  11. DOCUSATE [Concomitant]
  12. HALOPERIDOL [Concomitant]
  13. GUAIFENESIN [Concomitant]
  14. PREVACID [Concomitant]
  15. INSULIN ASPART [Concomitant]
  16. LORAZEPAM [Concomitant]
  17. MAGNESIUM SULFATE [Concomitant]
  18. MUPIROCIN [Concomitant]
  19. NYSTATIN [Concomitant]
  20. ZOFRAN [Concomitant]
  21. OXYMETAZOLINE HCL [Concomitant]
  22. PETROLATUM [Concomitant]
  23. COMPAZINE [Concomitant]
  24. SENNA [Concomitant]
  25. TOBRAMYCIN [Concomitant]
  26. TOCOPHEROL CONCENTRATE CAP [Concomitant]
  27. TACROLIMUS [Concomitant]
  28. MORPHINE [Concomitant]
  29. HYDROMORPHONE HCL [Concomitant]
  30. METHOTREXATE [Concomitant]
  31. TPN [Concomitant]
  32. . [Concomitant]

REACTIONS (3)
  - AGITATION [None]
  - CONFUSIONAL STATE [None]
  - HALLUCINATION [None]
